FAERS Safety Report 7611661-8 (Version None)
Quarter: 2011Q3

REPORT INFORMATION
  Report Type: 
  Country: None (occurrence: None)
  Receive Date: 20110715
  Receipt Date: 20110708
  Transmission Date: 20111222
  Serious: Yes (Death, Other)
  Sender: FDA-Public Use
  Company Number: US-CELGENEUS-163-21880-11032750

PATIENT
  Sex: Female

DRUGS (19)
  1. REVLIMID [Suspect]
     Dosage: 25 MILLIGRAM
     Route: 048
     Dates: start: 20100916, end: 20110301
  2. CELEBREX [Concomitant]
     Route: 065
  3. BIFERA [Concomitant]
     Route: 048
  4. KLOR-CON [Concomitant]
     Dosage: 30 MILLIGRAM
     Route: 048
  5. PREVACID [Concomitant]
     Dosage: 30 MILLIGRAM
     Route: 048
  6. BENZONATATE [Concomitant]
     Route: 048
  7. CENTRUM SILVER [Concomitant]
     Route: 048
  8. DECADRON [Concomitant]
     Dosage: 20 MILLIGRAM
     Route: 048
  9. ASPIRIN [Concomitant]
     Dosage: 81 MILLIGRAM
     Route: 048
  10. METAMUCIL SMOOTH TEXTURE [Concomitant]
     Route: 048
  11. SIMVASTATIN [Concomitant]
     Dosage: 40 MILLIGRAM
     Route: 048
  12. COUMADIN [Concomitant]
     Dosage: 5 MILLIGRAM
     Route: 048
  13. DECADRON [Concomitant]
     Route: 048
  14. KETOPROFEN [Concomitant]
     Dosage: 75 MILLIGRAM
     Route: 048
  15. STOOL SOFTENER [Concomitant]
     Dosage: 250 MILLIGRAM
     Route: 048
  16. COMPAZINE [Concomitant]
     Dosage: 10 MILLIGRAM
     Route: 048
  17. OSCAL [Concomitant]
     Dosage: 500/20 D-3
     Route: 048
  18. SURFAK [Concomitant]
     Dosage: 240 MILLIGRAM
     Route: 048
  19. LORTAB [Concomitant]
     Dosage: 7.5 MILLIGRAM
     Route: 048

REACTIONS (1)
  - ADENOCARCINOMA [None]
